FAERS Safety Report 4980342-1 (Version None)
Quarter: 2006Q2

REPORT INFORMATION
  Report Type: 
  Country: None (occurrence: None)
  Receive Date: 20060421
  Receipt Date: 20060421
  Transmission Date: 20061013
  Serious: Yes (Hospitalization)
  Sender: FDA-Public Use
  Company Number: None

PATIENT
  Age: 37 Year
  Sex: Male
  Weight: 86.637 kg

DRUGS (2)
  1. SEROQUEL [Suspect]
     Indication: DEMENTIA
     Dosage: 300 MG @ 0630-1600 PO; 200MG QHS PO
     Route: 048
     Dates: start: 20041101, end: 20060201
  2. SEROQUEL [Suspect]
     Indication: SYPHILIS
     Dosage: 300 MG @ 0630-1600 PO; 200MG QHS PO
     Route: 048
     Dates: start: 20041101, end: 20060201

REACTIONS (3)
  - BLOOD GLUCOSE INCREASED [None]
  - FALL [None]
  - POSTURE ABNORMAL [None]
